FAERS Safety Report 24202882 (Version 3)
Quarter: 2024Q3

REPORT INFORMATION
  Report Type: Spontaneous
  Country: BE (occurrence: BE)
  Receive Date: 20240813
  Receipt Date: 20240914
  Transmission Date: 20241017
  Serious: Yes (Hospitalization)
  Sender: JOHNSON AND JOHNSON
  Company Number: BE-JNJFOC-20240822366

PATIENT
  Age: 55 Year
  Sex: Male

DRUGS (4)
  1. SPRAVATO [Suspect]
     Active Substance: ESKETAMINE
     Indication: Depression
     Dates: start: 202407
  2. SPRAVATO [Suspect]
     Active Substance: ESKETAMINE
     Indication: Dementia
  3. SPRAVATO [Suspect]
     Active Substance: ESKETAMINE
  4. ZYPREXA [Suspect]
     Active Substance: OLANZAPINE
     Indication: Product used for unknown indication
     Route: 065

REACTIONS (4)
  - Hallucinations, mixed [Unknown]
  - Cognitive disorder [Unknown]
  - Incontinence [Unknown]
  - Psychotic disorder [Unknown]

NARRATIVE: CASE EVENT DATE: 20240101
